FAERS Safety Report 8387908-X (Version None)
Quarter: 2012Q2

REPORT INFORMATION
  Report Type: 
  Country: None (occurrence: None)
  Receive Date: 20120525
  Receipt Date: 20120518
  Transmission Date: 20120825
  Serious: Yes (Hospitalization)
  Sender: FDA-Public Use
  Company Number: AU-B.I. PHARMACEUTICALS,INC./RIDGEFIELD-2012-AU-00424AU

PATIENT
  Sex: Female

DRUGS (5)
  1. PRADAXA [Suspect]
     Indication: CEREBROVASCULAR ACCIDENT PROPHYLAXIS
     Dosage: 220 MG
     Dates: start: 20110901, end: 20111201
  2. PERINDOPRIL ERBUMINE [Concomitant]
  3. LASIX [Concomitant]
     Dates: start: 20110801
  4. BICOR [Concomitant]
     Dates: start: 20110801
  5. NEXIUM [Concomitant]
     Dates: start: 20111001

REACTIONS (6)
  - ORTHOSTATIC HYPOTENSION [None]
  - GASTROOESOPHAGEAL REFLUX DISEASE [None]
  - DECREASED APPETITE [None]
  - DEHYDRATION [None]
  - DYSPHAGIA [None]
  - ODYNOPHAGIA [None]
